FAERS Safety Report 19952027 (Version 1)
Quarter: 2021Q4

REPORT INFORMATION
  Report Type: Spontaneous
  Country: FR (occurrence: FR)
  Receive Date: 20211013
  Receipt Date: 20211013
  Transmission Date: 20220303
  Serious: Yes (Hospitalization, Other)
  Sender: FDA-Public Use
  Company Number: None

PATIENT
  Age: 54 Year
  Sex: Female
  Weight: 55 kg

DRUGS (2)
  1. RIFAMPIN [Suspect]
     Active Substance: RIFAMPIN
     Indication: Postoperative wound infection
     Dosage: 900 MG
     Route: 048
     Dates: start: 20210717, end: 20210729
  2. LEVOFLOXACIN [Suspect]
     Active Substance: LEVOFLOXACIN
     Indication: Postoperative wound infection
     Dosage: 750 MG
     Route: 048
     Dates: start: 20210717, end: 20210729

REACTIONS (7)
  - Influenza like illness [Recovered/Resolved]
  - Hepatic cytolysis [Recovered/Resolved]
  - Abdominal pain [Recovered/Resolved]
  - Pancytopenia [Recovering/Resolving]
  - Rash macular [Recovering/Resolving]
  - Cholestasis [Recovering/Resolving]
  - Pruritus [Recovering/Resolving]

NARRATIVE: CASE EVENT DATE: 20210701
